FAERS Safety Report 7989182-2 (Version None)
Quarter: 2011Q4

REPORT INFORMATION
  Report Type: 
  Country: None (occurrence: None)
  Receive Date: 20111215
  Receipt Date: 20111215
  Transmission Date: 20120403
  Serious: No
  Sender: FDA-Public Use
  Company Number: None

PATIENT

DRUGS (2)
  1. POTASSIUM CHLORIDE [Suspect]
     Dosage: INJECTION 20 MEQ/ 100 ML IV BAG 100 ML
     Route: 042
  2. POTASSIUM CHLORIDE [Suspect]
     Dosage: INJECTION 40 MEQ/ 100 ML IV BAG 10 ML

REACTIONS (2)
  - PRODUCT LABEL ISSUE [None]
  - CIRCUMSTANCE OR INFORMATION CAPABLE OF LEADING TO MEDICATION ERROR [None]
